FAERS Safety Report 6913874-7 (Version None)
Quarter: 2010Q3

REPORT INFORMATION
  Report Type: 
  Country: None (occurrence: None)
  Receive Date: 20100809
  Receipt Date: 20100729
  Transmission Date: 20110219
  Serious: Yes (Congenital Anomaly, Other)
  Sender: FDA-Public Use
  Company Number: US-RB-013630-10

PATIENT
  Sex: Male

DRUGS (1)
  1. SUBOXONE [Suspect]
     Indication: DRUG DEPENDENCE
     Route: 064
     Dates: start: 20090910, end: 20100526

REACTIONS (4)
  - DRUG EXPOSURE DURING PREGNANCY [None]
  - PYLORIC STENOSIS [None]
  - VOMITING PROJECTILE [None]
  - WEIGHT DECREASED [None]
